FAERS Safety Report 24682107 (Version 4)
Quarter: 2025Q3

REPORT INFORMATION
  Report Type: Spontaneous
  Country: EU (occurrence: EU)
  Receive Date: 20241130
  Receipt Date: 20250809
  Transmission Date: 20251021
  Serious: Yes (Hospitalization, Other)
  Sender: ALEXION PHARMACEUTICALS
  Company Number: EU-SA-2024SA327315

PATIENT
  Age: 66 Year
  Sex: Female
  Weight: 80 kg

DRUGS (225)
  1. FASLODEX [Suspect]
     Active Substance: FULVESTRANT
     Indication: Breast cancer metastatic
     Dosage: 500 MG, QM
     Dates: start: 20171116, end: 20191001
  2. FASLODEX [Suspect]
     Active Substance: FULVESTRANT
     Dosage: 500 MG, BIW
     Dates: start: 20171002
  3. FASLODEX [Suspect]
     Active Substance: FULVESTRANT
     Dates: start: 20171002, end: 20171115
  4. ENHERTU [Suspect]
     Active Substance: FAM-TRASTUZUMAB DERUXTECAN-NXKI
     Dates: start: 20200814, end: 20201015
  5. CAPECITABINE [Suspect]
     Active Substance: CAPECITABINE
     Indication: Breast cancer metastatic
     Dosage: 2000 MG, QD
  6. CAPECITABINE [Suspect]
     Active Substance: CAPECITABINE
     Dosage: 3000 MG, QD
  7. CAPECITABINE [Suspect]
     Active Substance: CAPECITABINE
     Dosage: 3000 MG, QD
  8. CAPECITABINE [Suspect]
     Active Substance: CAPECITABINE
     Dosage: 3500 MG, QD
  9. DOCETAXEL [Suspect]
     Active Substance: DOCETAXEL
     Indication: Breast cancer metastatic
  10. DOCETAXEL [Suspect]
     Active Substance: DOCETAXEL
     Dosage: 190 MG, Q3W
  11. DOCETAXEL [Suspect]
     Active Substance: DOCETAXEL
     Dosage: 180 MG, Q3W
  12. DOCETAXEL [Suspect]
     Active Substance: DOCETAXEL
     Dosage: 134.25 MG, Q3W
  13. DOCETAXEL [Suspect]
     Active Substance: DOCETAXEL
  14. DOXORUBICIN [Suspect]
     Active Substance: DOXORUBICIN
     Indication: Breast cancer metastatic
     Dosage: 104.400MG QD
     Dates: start: 20210608, end: 20210608
  15. TRASTUZUMAB [Suspect]
     Active Substance: TRASTUZUMAB
     Indication: Breast cancer metastatic
     Dosage: 468 MG, QD
     Dates: start: 20170720, end: 20170720
  16. TRASTUZUMAB [Suspect]
     Active Substance: TRASTUZUMAB
     Dosage: 560 MG, Q3W
     Dates: start: 20201230, end: 20210210
  17. TRASTUZUMAB [Suspect]
     Active Substance: TRASTUZUMAB
     Dosage: 540 MG, Q3W
     Dates: start: 20200422, end: 20200615
  18. TRASTUZUMAB [Suspect]
     Active Substance: TRASTUZUMAB
     Dosage: 624 MG, QD
     Dates: start: 20170224, end: 20170224
  19. TRASTUZUMAB [Suspect]
     Active Substance: TRASTUZUMAB
     Dosage: 462 MG, Q3W
  20. TRASTUZUMAB [Suspect]
     Active Substance: TRASTUZUMAB
     Dosage: 432 MG, QD
  21. TRASTUZUMAB [Suspect]
     Active Substance: TRASTUZUMAB
     Dosage: 414 MG, Q3W
  22. TRASTUZUMAB [Suspect]
     Active Substance: TRASTUZUMAB
     Dosage: 408 MG, Q3W
  23. TRASTUZUMAB [Suspect]
     Active Substance: TRASTUZUMAB
  24. TUCATINIB [Suspect]
     Active Substance: TUCATINIB
     Indication: Breast cancer metastatic
     Dosage: 300 MG, BID
     Dates: start: 20201230, end: 20210210
  25. TUCATINIB [Suspect]
     Active Substance: TUCATINIB
     Indication: Breast cancer metastatic
     Dosage: 300 MG, BID
  26. TUCATINIB [Suspect]
     Active Substance: TUCATINIB
     Dosage: 300 MG, BID
     Route: 065
  27. KADCYLA [Suspect]
     Active Substance: ADO-TRASTUZUMAB EMTANSINE
     Indication: Breast cancer metastatic
     Dosage: 270 MG, Q3W
     Dates: start: 20190306, end: 20190909
  28. KADCYLA [Suspect]
     Active Substance: ADO-TRASTUZUMAB EMTANSINE
     Indication: Breast cancer metastatic
     Dosage: 270 MG, Q3W
  29. KADCYLA [Suspect]
     Active Substance: ADO-TRASTUZUMAB EMTANSINE
     Dosage: 270 MG, Q3W
     Route: 065
  30. PEGFILGRASTIM [Suspect]
     Active Substance: PEGFILGRASTIM
     Indication: Product used for unknown indication
     Route: 065
  31. PERJETA [Suspect]
     Active Substance: PERTUZUMAB
     Indication: Breast cancer metastatic
     Dosage: 840 MG, QD
     Dates: start: 20210317, end: 20210428
  32. PERJETA [Suspect]
     Active Substance: PERTUZUMAB
     Dosage: 840 MG, QD
     Dates: start: 20200422, end: 20200615
  33. PERJETA [Suspect]
     Active Substance: PERTUZUMAB
     Dosage: 840 MG, QD
     Dates: start: 20170224
  34. PERJETA [Suspect]
     Active Substance: PERTUZUMAB
     Dosage: 840MG QD (MOST RECENT DOSE PRIOR TO THE EVENT WORSENING OF BRAIN METASTASES: 17MAR2017 MOST RECEN
     Route: 065
  35. PERJETA [Suspect]
     Active Substance: PERTUZUMAB
     Dosage: 840 MG, QD
     Route: 065
  36. PERJETA [Suspect]
     Active Substance: PERTUZUMAB
     Dosage: 840 MG, QD (START DATE: 22-APR-2020 AND END DATE:15-JUN-2020 )
     Route: 065
  37. PERJETA [Suspect]
     Active Substance: PERTUZUMAB
     Dosage: 840 MG, QD (START DATE:17-MAR-2021 AND END DATE: 28-APR-2021)
     Route: 065
  38. TYKERB [Suspect]
     Active Substance: LAPATINIB DITOSYLATE
     Indication: Breast cancer metastatic
     Dosage: 1000 MG, QD
     Dates: start: 20200108, end: 20200421
  39. TYKERB [Suspect]
     Active Substance: LAPATINIB DITOSYLATE
     Indication: Product used for unknown indication
     Dosage: 1250 MG, QD
     Dates: start: 20191002, end: 20200107
  40. TYKERB [Suspect]
     Active Substance: LAPATINIB DITOSYLATE
     Dosage: 1000 MG, QD
  41. TYKERB [Suspect]
     Active Substance: LAPATINIB DITOSYLATE
     Dosage: 1250 MG, QD
  42. TYKERB [Suspect]
     Active Substance: LAPATINIB DITOSYLATE
     Dosage: 1000 MG, QD
     Route: 065
  43. TYKERB [Suspect]
     Active Substance: LAPATINIB DITOSYLATE
     Dosage: 1250 MG, QD
     Route: 065
  44. BLEOMYCIN SULFATE [Suspect]
     Active Substance: BLEOMYCIN SULFATE
     Indication: Breast cancer metastatic
     Dosage: 26.850MG QD
     Dates: start: 20200519, end: 20200519
  45. BLEOMYCIN SULFATE [Suspect]
     Active Substance: BLEOMYCIN SULFATE
     Indication: HER2 positive breast cancer
     Dosage: 26.850MG QD
     Dates: start: 20210105, end: 20210105
  46. BLEOMYCIN SULFATE [Suspect]
     Active Substance: BLEOMYCIN SULFATE
     Dosage: 1 DF, QD
  47. BLEOMYCIN SULFATE [Suspect]
     Active Substance: BLEOMYCIN SULFATE
     Dosage: 26.850MG QD
  48. BLEOMYCIN SULFATE [Suspect]
     Active Substance: BLEOMYCIN SULFATE
     Dosage: 26.850MG QD
  49. BLEOMYCIN SULFATE [Suspect]
     Active Substance: BLEOMYCIN SULFATE
     Dosage: 26.850MG QD
  50. DENOSUMAB [Suspect]
     Active Substance: DENOSUMAB
     Indication: Breast cancer metastatic
     Dosage: 120 MG, Q4W
     Dates: start: 20201230, end: 20210210
  51. DENOSUMAB [Suspect]
     Active Substance: DENOSUMAB
  52. DENOSUMAB [Suspect]
     Active Substance: DENOSUMAB
     Dosage: 120 MG, Q4W (START DATE: 30-DEC-2020)
     Route: 065
  53. NAVELBINE [Suspect]
     Active Substance: VINORELBINE TARTRATE
     Indication: Breast cancer metastatic
     Dosage: 45 MG, Q3W
     Dates: start: 20200422, end: 20200722
  54. NAVELBINE [Suspect]
     Active Substance: VINORELBINE TARTRATE
     Dosage: 45 MG, Q3W
  55. NAVELBINE [Suspect]
     Active Substance: VINORELBINE TARTRATE
     Dosage: 45 MG, Q3W
  56. LAPATINIB [Suspect]
     Active Substance: LAPATINIB
     Indication: Breast cancer metastatic
     Dosage: 1250 MG, QD
     Dates: start: 20191002, end: 20200107
  57. LAPATINIB [Suspect]
     Active Substance: LAPATINIB
     Dosage: 1250 MG, QD
  58. LAPATINIB [Suspect]
     Active Substance: LAPATINIB
     Dosage: 1250 MG, QD
     Route: 065
  59. VINORELBINE TARTRATE [Suspect]
     Active Substance: VINORELBINE TARTRATE
     Indication: Breast cancer metastatic
     Dosage: 45 MG, ONCE EVERY 3 WK
     Route: 065
  60. TUCATINIB [Suspect]
     Active Substance: TUCATINIB
     Indication: Breast cancer metastatic
     Dosage: 300 MG, BID
     Dates: start: 20201230, end: 20210210
  61. VINORELBINE TARTRATE [Suspect]
     Active Substance: VINORELBINE TARTRATE
     Indication: Breast cancer metastatic
     Dosage: 45 MG, Q3W
     Dates: start: 20200422, end: 20200722
  62. VINORELBINE TARTRATE [Suspect]
     Active Substance: VINORELBINE TARTRATE
     Dosage: 45 MG, Q3W
  63. POLYETHYLENE GLYCOL 3350\POTASSIUM CHLORIDE\SODIUM BICARBONATE\SODIUM [Concomitant]
     Active Substance: POLYETHYLENE GLYCOL 3350\POTASSIUM CHLORIDE\SODIUM BICARBONATE\SODIUM CHLORIDE
     Route: 065
     Dates: start: 20210608, end: 20210616
  64. POLYETHYLENE GLYCOL 3350\POTASSIUM CHLORIDE\SODIUM BICARBONATE\SODIUM [Concomitant]
     Active Substance: POLYETHYLENE GLYCOL 3350\POTASSIUM CHLORIDE\SODIUM BICARBONATE\SODIUM CHLORIDE
     Indication: Product used for unknown indication
     Dates: start: 20170709, end: 20170709
  65. POLYETHYLENE GLYCOL 3350\POTASSIUM CHLORIDE\SODIUM BICARBONATE\SODIUM [Concomitant]
     Active Substance: POLYETHYLENE GLYCOL 3350\POTASSIUM CHLORIDE\SODIUM BICARBONATE\SODIUM CHLORIDE
     Indication: Product used for unknown indication
     Route: 065
     Dates: start: 20210608, end: 20210616
  66. MORPHINE [Concomitant]
     Active Substance: MORPHINE
     Route: 065
     Dates: start: 20210521, end: 20210623
  67. MORPHINE [Concomitant]
     Active Substance: MORPHINE
     Indication: Dyspnoea
     Route: 065
  68. MORPHINE [Concomitant]
     Active Substance: MORPHINE
     Indication: Product used for unknown indication
  69. Scottopect [Concomitant]
     Route: 065
     Dates: start: 20210611, end: 20210613
  70. Scottopect [Concomitant]
     Indication: Product used for unknown indication
     Route: 065
     Dates: start: 20210611, end: 20210613
  71. Scottopect [Concomitant]
     Indication: Cough
  72. ALPRAZOLAM [Concomitant]
     Active Substance: ALPRAZOLAM
     Route: 065
     Dates: start: 20210613, end: 20210615
  73. ALPRAZOLAM [Concomitant]
     Active Substance: ALPRAZOLAM
     Indication: Product used for unknown indication
     Route: 065
     Dates: start: 20210613, end: 20210615
  74. ALPRAZOLAM [Concomitant]
     Active Substance: ALPRAZOLAM
     Indication: Restlessness
  75. VITAMIN C [Concomitant]
     Active Substance: ASCORBIC ACID
     Route: 065
     Dates: start: 20210611, end: 20210614
  76. VITAMIN C [Concomitant]
     Active Substance: ASCORBIC ACID
     Indication: Product used for unknown indication
     Route: 065
     Dates: start: 20210611, end: 20210614
  77. VITAMIN C [Concomitant]
     Active Substance: ASCORBIC ACID
     Indication: Gastrointestinal disorder
  78. Paspertin [Concomitant]
     Route: 065
     Dates: start: 20210608, end: 20210623
  79. Paspertin [Concomitant]
     Indication: Product used for unknown indication
     Route: 065
     Dates: start: 20210608, end: 20210623
  80. Paspertin [Concomitant]
     Indication: Gastrointestinal disorder
     Route: 065
     Dates: start: 20210608, end: 20210610
  81. Paspertin [Concomitant]
     Route: 065
     Dates: start: 20210611, end: 20210623
  82. Paspertin [Concomitant]
     Route: 065
     Dates: start: 20210608, end: 20210623
  83. HYDROMORPHONE HYDROCHLORIDE [Concomitant]
     Active Substance: HYDROMORPHONE HYDROCHLORIDE
     Route: 065
     Dates: start: 20210611, end: 20210615
  84. HYDROMORPHONE HYDROCHLORIDE [Concomitant]
     Active Substance: HYDROMORPHONE HYDROCHLORIDE
     Indication: Product used for unknown indication
     Route: 065
     Dates: start: 20210611, end: 20210615
  85. Neriforte [Concomitant]
     Route: 065
  86. Neriforte [Concomitant]
     Indication: Skin fissures
     Dates: start: 20200430, end: 20200515
  87. Neriforte [Concomitant]
     Indication: Product used for unknown indication
  88. Cal c vita [Concomitant]
     Route: 065
     Dates: start: 20170203, end: 20210612
  89. Cal c vita [Concomitant]
     Indication: Product used for unknown indication
     Route: 065
  90. Cal c vita [Concomitant]
     Route: 065
     Dates: start: 20170203, end: 20210612
  91. Cal c vita [Concomitant]
     Route: 065
     Dates: start: 20170203, end: 20210612
  92. ZOFRAN [Concomitant]
     Active Substance: ONDANSETRON HYDROCHLORIDE
     Route: 065
     Dates: start: 20210611, end: 20210616
  93. ZOFRAN [Concomitant]
     Active Substance: ONDANSETRON HYDROCHLORIDE
     Indication: Product used for unknown indication
     Route: 065
  94. ZOFRAN [Concomitant]
     Active Substance: ONDANSETRON HYDROCHLORIDE
     Indication: Gastrointestinal disorder
     Route: 065
     Dates: start: 20210611, end: 20210612
  95. ZOFRAN [Concomitant]
     Active Substance: ONDANSETRON HYDROCHLORIDE
     Route: 065
     Dates: start: 20210612, end: 20210616
  96. DROPERIDOL [Concomitant]
     Active Substance: DROPERIDOL
     Route: 065
     Dates: start: 20210612, end: 20210617
  97. DROPERIDOL [Concomitant]
     Active Substance: DROPERIDOL
     Indication: Product used for unknown indication
     Route: 065
     Dates: start: 20210612, end: 20210617
  98. DROPERIDOL [Concomitant]
     Active Substance: DROPERIDOL
     Indication: Gastrointestinal disorder
  99. Halset [Concomitant]
     Route: 065
     Dates: start: 20210611, end: 20210615
  100. Halset [Concomitant]
     Indication: Product used for unknown indication
     Route: 065
     Dates: start: 20210611, end: 20210615
  101. Halset [Concomitant]
     Indication: Cough
     Route: 065
     Dates: start: 20210611, end: 20210615
  102. Halset [Concomitant]
     Route: 065
     Dates: start: 20210611, end: 20210615
  103. Halset [Concomitant]
     Route: 065
     Dates: start: 20210611, end: 20210615
  104. KCL [Concomitant]
     Active Substance: POTASSIUM CHLORIDE
     Indication: Product used for unknown indication
     Route: 065
     Dates: start: 20170429, end: 20200504
  105. EUTHYROX [Concomitant]
     Active Substance: LEVOTHYROXINE SODIUM
     Route: 065
     Dates: start: 20170303, end: 20210615
  106. EUTHYROX [Concomitant]
     Active Substance: LEVOTHYROXINE SODIUM
     Indication: Product used for unknown indication
     Route: 065
     Dates: start: 20170303, end: 20210615
  107. EUTHYROX [Concomitant]
     Active Substance: LEVOTHYROXINE SODIUM
     Route: 065
     Dates: start: 20170303, end: 20210615
  108. ONDANSETRON [Concomitant]
     Active Substance: ONDANSETRON
     Route: 065
     Dates: start: 20210608, end: 20210610
  109. ONDANSETRON [Concomitant]
     Active Substance: ONDANSETRON
     Indication: Product used for unknown indication
     Route: 065
     Dates: start: 20210611, end: 20210616
  110. ONDANSETRON [Concomitant]
     Active Substance: ONDANSETRON
     Indication: Gastrointestinal disorder
     Route: 065
     Dates: start: 20210611, end: 20210616
  111. ONDANSETRON [Concomitant]
     Active Substance: ONDANSETRON
     Route: 065
     Dates: start: 20210611, end: 20210616
  112. ONDANSETRON [Concomitant]
     Active Substance: ONDANSETRON
     Route: 065
     Dates: start: 20210608, end: 20210610
  113. Temesta [Concomitant]
     Route: 065
     Dates: start: 20210611, end: 20210621
  114. Temesta [Concomitant]
     Indication: Product used for unknown indication
     Route: 065
     Dates: start: 20210611, end: 20210621
  115. Temesta [Concomitant]
     Indication: Restlessness
     Route: 065
     Dates: start: 20210618, end: 20210623
  116. FENTANYL [Concomitant]
     Active Substance: FENTANYL
     Route: 065
  117. FENTANYL [Concomitant]
     Active Substance: FENTANYL
     Indication: Product used for unknown indication
     Route: 065
  118. FENTANYL [Concomitant]
     Active Substance: FENTANYL
     Route: 065
  119. ACETAMINOPHEN [Concomitant]
     Active Substance: ACETAMINOPHEN
     Route: 065
     Dates: start: 20210622, end: 20210622
  120. ACETAMINOPHEN [Concomitant]
     Active Substance: ACETAMINOPHEN
     Indication: Pseudomonal sepsis
     Route: 065
     Dates: end: 20210622
  121. ACETAMINOPHEN [Concomitant]
     Active Substance: ACETAMINOPHEN
     Indication: Product used for unknown indication
     Route: 065
     Dates: start: 20200506, end: 20210622
  122. ACETAMINOPHEN [Concomitant]
     Active Substance: ACETAMINOPHEN
     Route: 065
     Dates: start: 20200506, end: 20210622
  123. ACETAMINOPHEN [Concomitant]
     Active Substance: ACETAMINOPHEN
     Route: 065
     Dates: start: 20200506, end: 20210622
  124. ACETAMINOPHEN [Concomitant]
     Active Substance: ACETAMINOPHEN
     Route: 065
     Dates: start: 20200506, end: 20210622
  125. ACETAMINOPHEN [Concomitant]
     Active Substance: ACETAMINOPHEN
     Route: 065
     Dates: start: 20210622, end: 20210622
  126. ACETAMINOPHEN [Concomitant]
     Active Substance: ACETAMINOPHEN
     Route: 065
     Dates: start: 20210622, end: 20210622
  127. BUTYLSCOPOLAMINE BROMIDE [Concomitant]
     Active Substance: BUTYLSCOPOLAMINE BROMIDE
     Route: 065
     Dates: start: 20210618, end: 20210618
  128. BUTYLSCOPOLAMINE BROMIDE [Concomitant]
     Active Substance: BUTYLSCOPOLAMINE BROMIDE
     Indication: Product used for unknown indication
  129. Oleovit [Concomitant]
     Route: 065
     Dates: start: 20170329, end: 20210615
  130. Oleovit [Concomitant]
     Indication: Product used for unknown indication
  131. Oleovit [Concomitant]
  132. Oleovit [Concomitant]
  133. Oleovit [Concomitant]
  134. Oleovit [Concomitant]
  135. Paracodin [Concomitant]
     Route: 065
     Dates: start: 20210428, end: 20210615
  136. Paracodin [Concomitant]
     Indication: Product used for unknown indication
  137. PANTOPRAZOLE [Concomitant]
     Active Substance: PANTOPRAZOLE
     Route: 065
     Dates: start: 20210317, end: 20210623
  138. PANTOPRAZOLE [Concomitant]
     Active Substance: PANTOPRAZOLE
     Indication: Product used for unknown indication
     Route: 065
     Dates: start: 20210317, end: 20210623
  139. PANTOPRAZOLE [Concomitant]
     Active Substance: PANTOPRAZOLE
     Indication: Gastrointestinal disorder
     Route: 065
     Dates: start: 20170722, end: 20180327
  140. PANTOPRAZOLE [Concomitant]
     Active Substance: PANTOPRAZOLE
     Route: 065
     Dates: start: 20170722, end: 20180327
  141. PANTOPRAZOLE [Concomitant]
     Active Substance: PANTOPRAZOLE
     Route: 065
     Dates: start: 20200506, end: 20200519
  142. PANTOPRAZOLE [Concomitant]
     Active Substance: PANTOPRAZOLE
     Route: 065
     Dates: start: 20210317, end: 20210623
  143. PANTOPRAZOLE [Concomitant]
     Active Substance: PANTOPRAZOLE
     Route: 065
     Dates: start: 20200506, end: 20200519
  144. Leukichtan [Concomitant]
     Route: 065
     Dates: start: 20200430, end: 20200515
  145. Leukichtan [Concomitant]
     Indication: Product used for unknown indication
  146. DRONABINOL [Concomitant]
     Active Substance: DRONABINOL
     Route: 065
     Dates: start: 20210608, end: 20210612
  147. DRONABINOL [Concomitant]
     Active Substance: DRONABINOL
     Indication: Product used for unknown indication
     Route: 065
     Dates: start: 20210608, end: 20210612
  148. DRONABINOL [Concomitant]
     Active Substance: DRONABINOL
     Route: 065
     Dates: start: 20210608, end: 20210612
  149. DRONABINOL [Concomitant]
     Active Substance: DRONABINOL
     Route: 065
     Dates: start: 20210608, end: 20210612
  150. DRONABINOL [Concomitant]
     Active Substance: DRONABINOL
     Route: 065
     Dates: start: 20210608, end: 20210612
  151. DRONABINOL [Concomitant]
     Active Substance: DRONABINOL
     Route: 065
     Dates: start: 20210608, end: 20210612
  152. DRONABINOL [Concomitant]
     Active Substance: DRONABINOL
     Route: 065
     Dates: start: 20210608, end: 20210612
  153. EDOXABAN TOSYLATE [Concomitant]
     Active Substance: EDOXABAN TOSYLATE
     Route: 065
     Dates: start: 20200613, end: 20210611
  154. EDOXABAN TOSYLATE [Concomitant]
     Active Substance: EDOXABAN TOSYLATE
     Indication: Product used for unknown indication
     Route: 065
  155. EDOXABAN TOSYLATE [Concomitant]
     Active Substance: EDOXABAN TOSYLATE
     Route: 065
     Dates: start: 20191120, end: 20200608
  156. Novalgin [Concomitant]
     Indication: Product used for unknown indication
     Route: 065
     Dates: start: 20210608, end: 20210618
  157. Novalgin [Concomitant]
     Dates: start: 20210608, end: 20210612
  158. Novalgin [Concomitant]
     Route: 065
     Dates: start: 20210618, end: 20210618
  159. XGEVA [Concomitant]
     Active Substance: DENOSUMAB
     Indication: Product used for unknown indication
     Route: 065
  160. XGEVA [Concomitant]
     Active Substance: DENOSUMAB
     Indication: Breast cancer metastatic
     Route: 065
  161. XGEVA [Concomitant]
     Active Substance: DENOSUMAB
     Route: 065
  162. LORAZEPAM [Concomitant]
     Active Substance: LORAZEPAM
     Indication: Product used for unknown indication
     Route: 065
  163. LORAZEPAM [Concomitant]
     Active Substance: LORAZEPAM
     Indication: Restlessness
     Route: 065
     Dates: start: 20210618, end: 20210623
  164. LORAZEPAM [Concomitant]
     Active Substance: LORAZEPAM
     Route: 065
     Dates: start: 20210618, end: 20210623
  165. LORAZEPAM [Concomitant]
     Active Substance: LORAZEPAM
     Route: 065
     Dates: start: 20210618, end: 20210623
  166. LORAZEPAM [Concomitant]
     Active Substance: LORAZEPAM
     Route: 065
     Dates: start: 20210618, end: 20210623
  167. LORAZEPAM [Concomitant]
     Active Substance: LORAZEPAM
     Route: 065
  168. LORAZEPAM [Concomitant]
     Active Substance: LORAZEPAM
     Route: 065
  169. PREGABALIN [Concomitant]
     Active Substance: PREGABALIN
     Indication: Product used for unknown indication
     Route: 065
  170. PREGABALIN [Concomitant]
     Active Substance: PREGABALIN
     Route: 065
  171. PREGABALIN [Concomitant]
     Active Substance: PREGABALIN
     Route: 065
  172. ZIEXTENZO [Concomitant]
     Active Substance: PEGFILGRASTIM-BMEZ
     Indication: Product used for unknown indication
     Route: 065
  173. ZIEXTENZO [Concomitant]
     Active Substance: PEGFILGRASTIM-BMEZ
     Route: 065
  174. ZIEXTENZO [Concomitant]
     Active Substance: PEGFILGRASTIM-BMEZ
     Route: 065
  175. LACTULOSE [Concomitant]
     Active Substance: LACTULOSE
     Indication: Product used for unknown indication
     Route: 065
  176. LACTULOSE [Concomitant]
     Active Substance: LACTULOSE
     Route: 065
  177. LACTULOSE [Concomitant]
     Active Substance: LACTULOSE
     Route: 065
  178. BETAMETHASONE DIPROPIONATE [Concomitant]
     Active Substance: BETAMETHASONE DIPROPIONATE
     Indication: Product used for unknown indication
  179. BETAMETHASONE DIPROPIONATE [Concomitant]
     Active Substance: BETAMETHASONE DIPROPIONATE
  180. Ponveridol [Concomitant]
     Indication: Product used for unknown indication
     Route: 065
  181. Ponveridol [Concomitant]
     Indication: Gastrointestinal disorder
     Route: 065
     Dates: start: 20210612, end: 20210617
  182. Ponveridol [Concomitant]
     Indication: Restlessness
     Route: 065
     Dates: start: 20210612, end: 20210617
  183. CARBOXYMETHYLCELLULOSE SODIUM [Concomitant]
     Active Substance: CARBOXYMETHYLCELLULOSE SODIUM
     Indication: Product used for unknown indication
     Route: 065
  184. CARBOXYMETHYLCELLULOSE SODIUM [Concomitant]
     Active Substance: CARBOXYMETHYLCELLULOSE SODIUM
     Route: 065
  185. LOVENOX [Concomitant]
     Active Substance: ENOXAPARIN SODIUM
     Route: 065
     Dates: start: 20170224, end: 20171130
  186. LOVENOX [Concomitant]
     Active Substance: ENOXAPARIN SODIUM
     Indication: Product used for unknown indication
  187. LEVOFLOXACIN [Concomitant]
     Active Substance: LEVOFLOXACIN
     Indication: Product used for unknown indication
     Route: 065
     Dates: start: 20200506, end: 20200512
  188. LEVOFLOXACIN [Concomitant]
     Active Substance: LEVOFLOXACIN
     Indication: Product used for unknown indication
  189. MORPHINE SULFATE [Concomitant]
     Active Substance: MORPHINE SULFATE
     Indication: Product used for unknown indication
  190. MORPHINE SULFATE [Concomitant]
     Active Substance: MORPHINE SULFATE
     Route: 065
  191. MORPHINE SULFATE [Concomitant]
     Active Substance: MORPHINE SULFATE
     Route: 065
     Dates: start: 20210521, end: 20210616
  192. MORPHINE SULFATE [Concomitant]
     Active Substance: MORPHINE SULFATE
     Route: 065
     Dates: start: 20210521, end: 20210616
  193. MORPHINE SULFATE [Concomitant]
     Active Substance: MORPHINE SULFATE
     Route: 065
     Dates: start: 20210521, end: 20210616
  194. MORPHINE SULFATE [Concomitant]
     Active Substance: MORPHINE SULFATE
     Route: 065
     Dates: start: 20210521, end: 20210616
  195. MORPHINE SULFATE [Concomitant]
     Active Substance: MORPHINE SULFATE
     Route: 065
     Dates: start: 20210521, end: 20210616
  196. MORPHINE SULFATE [Concomitant]
     Active Substance: MORPHINE SULFATE
     Route: 065
     Dates: start: 20210616, end: 20210623
  197. MORPHINE SULFATE [Concomitant]
     Active Substance: MORPHINE SULFATE
     Route: 065
     Dates: start: 20210616, end: 20210623
  198. MORPHINE SULFATE [Concomitant]
     Active Substance: MORPHINE SULFATE
     Route: 065
     Dates: start: 20210616, end: 20210623
  199. MORPHINE SULFATE [Concomitant]
     Active Substance: MORPHINE SULFATE
     Route: 065
     Dates: start: 20210616, end: 20210623
  200. MORPHINE SULFATE [Concomitant]
     Active Substance: MORPHINE SULFATE
     Route: 065
     Dates: start: 20210616, end: 20210623
  201. Kalioral [Concomitant]
     Indication: Product used for unknown indication
     Route: 065
     Dates: start: 20200427, end: 20200428
  202. DEXAMETHASONE [Concomitant]
     Active Substance: DEXAMETHASONE
     Indication: Product used for unknown indication
     Route: 065
     Dates: start: 20170810, end: 20200505
  203. SILICON [Concomitant]
     Active Substance: SILICON
     Indication: Product used for unknown indication
     Route: 065
     Dates: start: 20200521, end: 20200602
  204. SILICON [Concomitant]
     Active Substance: SILICON
     Route: 065
     Dates: start: 20200430, end: 20200515
  205. SILICON [Concomitant]
     Active Substance: SILICON
     Route: 065
     Dates: start: 20200521, end: 20200602
  206. SILICON [Concomitant]
     Active Substance: SILICON
     Route: 065
     Dates: start: 20200521, end: 20200602
  207. SILICON [Concomitant]
     Active Substance: SILICON
     Route: 065
     Dates: start: 20200521, end: 20200602
  208. SILICON [Concomitant]
     Active Substance: SILICON
     Route: 065
     Dates: start: 20200521, end: 20200602
  209. BETAISODONA [Concomitant]
     Active Substance: POVIDONE-IODINE
     Indication: Product used for unknown indication
     Route: 065
     Dates: start: 20200430, end: 20200515
  210. BETAISODONA [Concomitant]
     Active Substance: POVIDONE-IODINE
     Indication: Skin fissures
     Route: 065
     Dates: start: 20200430, end: 20200515
  211. BETAISODONA [Concomitant]
     Active Substance: POVIDONE-IODINE
     Route: 065
     Dates: start: 20200430, end: 20200515
  212. BETAISODONA [Concomitant]
     Active Substance: POVIDONE-IODINE
     Route: 065
     Dates: start: 20200430, end: 20200515
  213. BETAISODONA [Concomitant]
     Active Substance: POVIDONE-IODINE
     Route: 065
     Dates: start: 20200430, end: 20200515
  214. BETAISODONA [Concomitant]
     Active Substance: POVIDONE-IODINE
     Route: 065
     Dates: start: 20200430, end: 20200515
  215. CALCIUM CARBONATE\CHOLECALCIFEROL [Concomitant]
     Active Substance: CALCIUM CARBONATE\CHOLECALCIFEROL
     Indication: Product used for unknown indication
     Route: 065
  216. Aceclofenac and paracetamol [Concomitant]
     Indication: Product used for unknown indication
     Route: 065
     Dates: start: 20210622, end: 20210622
  217. Aceclofenac and paracetamol [Concomitant]
     Route: 065
     Dates: start: 20210622, end: 20210622
  218. Aceclofenac and paracetamol [Concomitant]
     Route: 065
     Dates: start: 20210622, end: 20210622
  219. Aceclofenac and paracetamol [Concomitant]
     Route: 065
     Dates: start: 20210622, end: 20210622
  220. Aceclofenac and paracetamol [Concomitant]
     Route: 065
     Dates: start: 20210622, end: 20210622
  221. Aceclofenac and paracetamol [Concomitant]
     Route: 065
     Dates: start: 20210622, end: 20210622
  222. EMEND [Concomitant]
     Active Substance: APREPITANT
     Indication: Product used for unknown indication
     Route: 065
     Dates: start: 20200428, end: 20200430
  223. TAZOBACTAM [Concomitant]
     Active Substance: TAZOBACTAM
     Indication: Product used for unknown indication
     Route: 065
     Dates: start: 20200423, end: 20200504
  224. MORPHINE [Concomitant]
     Active Substance: MORPHINE
     Indication: Dyspnoea
     Route: 065
     Dates: start: 20210616, end: 20210623
  225. MORPHINE [Concomitant]
     Active Substance: MORPHINE
     Route: 065
     Dates: start: 20210521, end: 20210616

REACTIONS (22)
  - Pseudomonal sepsis [Recovered/Resolved]
  - Streptococcal sepsis [Recovered/Resolved]
  - Metastases to central nervous system [Not Recovered/Not Resolved]
  - Vascular device infection [Recovered/Resolved]
  - Brain oedema [Not Recovered/Not Resolved]
  - Metastases to lymph nodes [Not Recovered/Not Resolved]
  - C-reactive protein increased [Not Recovered/Not Resolved]
  - Sepsis [Recovered/Resolved]
  - Candida infection [Recovered/Resolved]
  - Back pain [Recovered/Resolved]
  - Vomiting [Recovered/Resolved]
  - Nausea [Recovered/Resolved]
  - Fatigue [Not Recovered/Not Resolved]
  - Skin fissures [Recovered/Resolved]
  - Varicose vein [Not Recovered/Not Resolved]
  - Nail bed inflammation [Unknown]
  - Eczema [Not Recovered/Not Resolved]
  - Paronychia [Recovered/Resolved]
  - Pleural effusion [Recovered/Resolved]
  - Nasal mucosal disorder [Recovered/Resolved]
  - Off label use [Unknown]
  - Restlessness [Unknown]

NARRATIVE: CASE EVENT DATE: 20170921
